FAERS Safety Report 10664253 (Version 2)
Quarter: 2014Q4

REPORT INFORMATION
  Report Type: Spontaneous
  Country: JP (occurrence: None)
  Receive Date: 20141217
  Receipt Date: 20141223
  Transmission Date: 20150529
  Serious: Yes (Other)
  Sender: FDA-Public Use
  Company Number: 2014MPI01637

PATIENT
  Age: 55 Year
  Sex: Male

DRUGS (1)
  1. ADCETRIS [Suspect]
     Active Substance: BRENTUXIMAB VEDOTIN
     Indication: HODGKIN^S DISEASE
     Route: 041
     Dates: start: 201410

REACTIONS (4)
  - Hepatitis C RNA increased [None]
  - Blood pressure decreased [None]
  - Gastrointestinal perforation [None]
  - Oxygen saturation decreased [None]

NARRATIVE: CASE EVENT DATE: 201411
